FAERS Safety Report 10201176 (Version 1)
Quarter: 2014Q2

REPORT INFORMATION
  Report Type: Spontaneous
  Country: US (occurrence: US)
  Receive Date: 20140528
  Receipt Date: 20140528
  Transmission Date: 20141212
  Serious: No
  Sender: FDA-Public Use
  Company Number: US-PFIZER INC-2014142701

PATIENT
  Sex: Female

DRUGS (1)
  1. ADVIL [Suspect]
     Dosage: 400 MG (BY TAKING TWO 200MG TOGETHER), THREE TIMES A DAY

REACTIONS (2)
  - Hypoaesthesia [Unknown]
  - Nervousness [Unknown]
